FAERS Safety Report 9238348 (Version 1)
Quarter: 2013Q2

REPORT INFORMATION
  Report Type: Spontaneous
  Country: US (occurrence: None)
  Receive Date: 20130417
  Receipt Date: 20130417
  Transmission Date: 20140414
  Serious: Yes (Death)
  Sender: FDA-Public Use
  Company Number: None

PATIENT
  Age: 53 Year
  Sex: Male
  Weight: 59 kg

DRUGS (2)
  1. MORPHINE SULFATE [Suspect]
     Indication: PAIN
     Route: 042
     Dates: start: 20130321
  2. MORPHINE SULFATE [Suspect]
     Indication: PANCREATIC CARCINOMA
     Route: 042
     Dates: start: 20130321

REACTIONS (2)
  - Overdose [None]
  - Device computer issue [None]
